FAERS Safety Report 18290995 (Version 1)
Quarter: 2020Q3

REPORT INFORMATION
  Report Type: Spontaneous
  Country: US (occurrence: US)
  Receive Date: 20200922
  Receipt Date: 20200922
  Transmission Date: 20201103
  Serious: Yes (Hospitalization, Other)
  Sender: FDA-Public Use
  Company Number: US-ALEMBIC PHARMACUETICALS LIMITED-2020SCAL000413

PATIENT

DRUGS (1)
  1. VENLAFAXINE HYDROCHLORIDE. [Suspect]
     Active Substance: VENLAFAXINE HYDROCHLORIDE
     Indication: PRODUCT USED FOR UNKNOWN INDICATION
     Dosage: UNK
     Route: 064

REACTIONS (13)
  - Foetal exposure during pregnancy [Unknown]
  - C-reactive protein increased [Recovered/Resolved]
  - Neutrophil count increased [Recovered/Resolved]
  - Somnolence [Recovered/Resolved]
  - Weight decreased [Recovered/Resolved]
  - Poor sucking reflex [Recovered/Resolved]
  - Decreased activity [Recovered/Resolved]
  - Poor feeding infant [Recovered/Resolved]
  - Drug level increased [Recovered/Resolved]
  - Encephalopathy neonatal [Recovered/Resolved]
  - Body temperature decreased [Recovered/Resolved]
  - Drug withdrawal syndrome neonatal [Unknown]
  - Hypothermia neonatal [Recovered/Resolved]
